FAERS Safety Report 9532224 (Version 1)
Quarter: 2013Q3

REPORT INFORMATION
  Report Type: Spontaneous
  Country: DE (occurrence: DE)
  Receive Date: 20130918
  Receipt Date: 20130918
  Transmission Date: 20140515
  Serious: Yes (Hospitalization)
  Sender: FDA-Public Use
  Company Number: DE-TEVA-431047GER

PATIENT
  Age: 63 Year
  Sex: Male

DRUGS (5)
  1. AMANTADINE [Suspect]
     Indication: MUSCLE SPASTICITY
     Route: 042
     Dates: start: 20130723, end: 20130725
  2. LEVOTHYROXIN [Concomitant]
     Indication: THYROID HORMONE REPLACEMENT THERAPY
     Route: 048
  3. BISOPROLOL [Concomitant]
     Indication: ESSENTIAL HYPERTENSION
     Route: 048
  4. ASS [Concomitant]
     Indication: CARDIOVASCULAR EVENT PROPHYLAXIS
     Route: 048
  5. AMITRIPTYLIN [Concomitant]
     Indication: DEPRESSION
     Route: 048

REACTIONS (1)
  - Cholecystitis acute [Unknown]
